FAERS Safety Report 8908069 (Version 2)
Quarter: 2012Q4

REPORT INFORMATION
  Report Type: 
  Country: US (occurrence: US)
  Receive Date: 20121114
  Receipt Date: 20121130
  Transmission Date: 20130627
  Serious: No
  Sender: FDA-Public Use
  Company Number: US-009507513-1211USA003152

PATIENT
  Age: 51 Year
  Sex: Female
  Weight: 53.61 kg

DRUGS (8)
  1. GYNE LOTRIMIN 3 DAY CREAM [Suspect]
     Indication: PRODUCT USED FOR UNKNOWN INDICATION
     Dosage: 1 DF, qd
     Route: 067
     Dates: start: 20120912, end: 20120915
  2. WELLBUTRIN [Concomitant]
     Indication: DEPRESSION
     Dosage: UNK, Unknown
  3. XANAX [Concomitant]
     Indication: ANXIETY
     Dosage: UNK, Unknown
  4. MELATONIN [Concomitant]
     Indication: SLEEP DISORDER
     Dosage: UNK, Unknown
  5. VITAMIN E [Concomitant]
     Indication: PRODUCT USED FOR UNKNOWN INDICATION
     Dosage: UNK, Unknown
  6. ASCORBIC ACID [Concomitant]
     Indication: PRODUCT USED FOR UNKNOWN INDICATION
     Dosage: UNK, Unknown
  7. OMEGA-3 MARINE TRIGLYCERIDES [Concomitant]
     Indication: PRODUCT USED FOR UNKNOWN INDICATION
     Dosage: UNK, Unknown
  8. VITAMINS (UNSPECIFIED) [Concomitant]
     Indication: PRODUCT USED FOR UNKNOWN INDICATION
     Dosage: UNK, Unknown

REACTIONS (1)
  - Drug ineffective [Unknown]
